FAERS Safety Report 16310082 (Version 1)
Quarter: 2019Q2

REPORT INFORMATION
  Report Type: Spontaneous
  Country: US (occurrence: US)
  Receive Date: 20190514
  Receipt Date: 20190514
  Transmission Date: 20190711
  Serious: Yes (Other)
  Sender: FDA-Public Use
  Company Number: US-GILEAD-2019-0407046

PATIENT
  Age: 53 Year
  Sex: Female

DRUGS (1)
  1. YESCARTA [Suspect]
     Active Substance: AXICABTAGENE CILOLEUCEL
     Indication: DOUBLE HIT LYMPHOMA
     Route: 065

REACTIONS (3)
  - Cytokine release syndrome [Unknown]
  - Neurotoxicity [Unknown]
  - Subarachnoid haemorrhage [Unknown]
